FAERS Safety Report 4418055-7 (Version None)
Quarter: 2004Q3

REPORT INFORMATION
  Report Type: 
  Country: None (occurrence: None)
  Receive Date: 20040803
  Receipt Date: 20040726
  Transmission Date: 20050211
  Serious: Yes (Hospitalization, Disabling)
  Sender: FDA-Public Use
  Company Number: ZONI001477

PATIENT
  Age: 68 Year
  Sex: Female

DRUGS (5)
  1. EXCEGRAN (ZONISAMIDE) [Suspect]
     Indication: TRIGEMINAL NEURALGIA
     Dosage: 200 MG, ORAL
     Route: 048
     Dates: start: 20030630, end: 20030805
  2. TEGRETOL [Suspect]
     Indication: TRIGEMINAL NEURALGIA
     Dosage: 150 MG, ORAL
     Route: 048
     Dates: start: 20030217, end: 20030807
  3. MINOMYCIN (MINOCYCLINE HYDROCHLORIDE) [Suspect]
     Indication: UPPER RESPIRATORY TRACT INFLAMMATION
     Dates: start: 20030807, end: 20030807
  4. HIRNAMIN (LEVOMEPROMAZINE) [Concomitant]
  5. SERENACE (HALOPERIDOL) [Concomitant]

REACTIONS (9)
  - BLISTER [None]
  - DRUG HYPERSENSITIVITY [None]
  - ORAL CANDIDIASIS [None]
  - PEMPHIGOID [None]
  - PHARYNGOLARYNGEAL PAIN [None]
  - PSYCHOTIC DISORDER [None]
  - PYREXIA [None]
  - TOXIC SKIN ERUPTION [None]
  - UPPER RESPIRATORY TRACT INFLAMMATION [None]
